FAERS Safety Report 4979748-6 (Version None)
Quarter: 2006Q2

REPORT INFORMATION
  Report Type: 
  Country: None (occurrence: None)
  Receive Date: 20060418
  Receipt Date: 20060407
  Transmission Date: 20061013
  Serious: Yes (Other)
  Sender: FDA-Public Use
  Company Number: 2006044408

PATIENT
  Age: 75 Year
  Sex: Male

DRUGS (4)
  1. ATARAX [Suspect]
     Indication: ECZEMA
     Dosage: 20 MG, ORAL
     Route: 048
     Dates: start: 20060311, end: 20060318
  2. EBASTEL (EBASTINE) [Suspect]
     Indication: ECZEMA
     Dosage: 10 MG (10 MG, 1 IN 1 D), ORAL
     Route: 048
     Dates: start: 20060311, end: 20060318
  3. ASPIRIN [Concomitant]
  4. KETAS (IBUDILAST) [Concomitant]

REACTIONS (4)
  - ANOREXIA [None]
  - CHROMATURIA [None]
  - LIVER DISORDER [None]
  - TREATMENT NONCOMPLIANCE [None]
